FAERS Safety Report 7861231-1 (Version None)
Quarter: 2011Q4

REPORT INFORMATION
  Report Type: 
  Country: None (occurrence: None)
  Receive Date: 20111027
  Receipt Date: 20111017
  Transmission Date: 20120403
  Serious: Yes (Hospitalization)
  Sender: FDA-Public Use
  Company Number: FR-EISAI INC-E3810-05023-SPO-FR

PATIENT
  Sex: Female

DRUGS (5)
  1. PAROXETINE HCL [Suspect]
     Route: 048
     Dates: start: 20110815, end: 20110901
  2. ASPIRIN [Concomitant]
  3. LEVOTHYROXINE SODIUM [Concomitant]
  4. RABEPRAZOLE SODIUM [Suspect]
     Dosage: UNKNOWN
     Route: 048
     Dates: end: 20110901
  5. NEBIVOLOL HCL [Concomitant]

REACTIONS (5)
  - STERNAL FRACTURE [None]
  - COGNITIVE DISORDER [None]
  - HYPONATRAEMIA [None]
  - ECCHYMOSIS [None]
  - FALL [None]
